FAERS Safety Report 25021516 (Version 1)
Quarter: 2025Q1

REPORT INFORMATION
  Report Type: Spontaneous
  Country: CA (occurrence: CA)
  Receive Date: 20250228
  Receipt Date: 20250228
  Transmission Date: 20250408
  Serious: Yes (Other)
  Sender: Kenvue
  Company Number: CA-KENVUE-20250205662

PATIENT

DRUGS (12)
  1. TYLENOL [Suspect]
     Active Substance: ACETAMINOPHEN
     Indication: Pyrexia
     Route: 065
     Dates: start: 2025
  2. ADVIL [Suspect]
     Active Substance: IBUPROFEN
     Indication: Pyrexia
     Route: 065
     Dates: start: 2025
  3. ABRILADA [Concomitant]
     Active Substance: ADALIMUMAB-AFZB
     Indication: Colitis ulcerative
     Route: 058
     Dates: start: 20230119, end: 20230216
  4. ABRILADA [Concomitant]
     Active Substance: ADALIMUMAB-AFZB
     Dosage: 40 MILLIGRAM, ONCE IN A WEEK
     Route: 058
     Dates: start: 20230224, end: 2023
  5. ABRILADA [Concomitant]
     Active Substance: ADALIMUMAB-AFZB
     Dosage: 1 DOSAGE FORM, ONCE IN A WEEK, (4 DOSES OF 160MG IN WEEKLY DOSE THEN MAINTENANCE AT 40MG WEEKLY)
     Route: 058
     Dates: start: 20230306, end: 2023
  6. ABRILADA [Concomitant]
     Active Substance: ADALIMUMAB-AFZB
     Dosage: 80 MILLIGRAM, ONCE IN A WEEK
     Route: 058
     Dates: start: 2023, end: 2024
  7. ABRILADA [Concomitant]
     Active Substance: ADALIMUMAB-AFZB
     Dosage: 40 MILLIGRAM, ONCE IN A WEEK
     Route: 058
     Dates: start: 2024
  8. ABRILADA [Concomitant]
     Active Substance: ADALIMUMAB-AFZB
     Dosage: 40 MILLIGRAM, ONCE IN A WEEK
     Route: 058
     Dates: start: 20250116, end: 2025
  9. PREDNISONE [Concomitant]
     Active Substance: PREDNISONE
     Indication: Product used for unknown indication
     Route: 065
  10. FOLIC ACID [Concomitant]
     Active Substance: FOLIC ACID
     Indication: Product used for unknown indication
     Route: 065
  11. UNSPECIFIED INGREDIENT [Concomitant]
     Active Substance: UNSPECIFIED INGREDIENT
     Indication: Migraine
     Route: 065
     Dates: start: 2025
  12. VITAMINS [Concomitant]
     Active Substance: VITAMINS
     Indication: Product used for unknown indication
     Route: 065

REACTIONS (1)
  - Colitis ulcerative [Unknown]

NARRATIVE: CASE EVENT DATE: 20250101
